FAERS Safety Report 5395781-7 (Version None)
Quarter: 2007Q3

REPORT INFORMATION
  Report Type: 
  Country: None (occurrence: None)
  Receive Date: 20070724
  Receipt Date: 20070712
  Transmission Date: 20080115
  Serious: Yes (Hospitalization)
  Sender: FDA-Public Use
  Company Number: US-PFIZER INC-2007057385

PATIENT
  Weight: 74.8 kg

DRUGS (2)
  1. CELEBREX [Suspect]
     Indication: INJURY
  2. BEXTRA [Suspect]
     Indication: INJURY

REACTIONS (2)
  - CARDIAC DISORDER [None]
  - CHEST PAIN [None]
